FAERS Safety Report 5109184-3 (Version None)
Quarter: 2006Q3

REPORT INFORMATION
  Report Type: 
  Country: None (occurrence: None)
  Receive Date: 20060920
  Receipt Date: 20060913
  Transmission Date: 20061208
  Serious: Yes (Disabling, Other)
  Sender: FDA-Public Use
  Company Number: 2006AC01696

PATIENT
  Age: 46 Year
  Sex: Female

DRUGS (5)
  1. BUPIVACAINE [Suspect]
     Indication: ANAESTHESIA
  2. BUPIVACAINE [Suspect]
     Indication: POSTOPERATIVE ANALGESIA
  3. BUPIVACAINE [Suspect]
  4. BUPIVACAINE [Suspect]
  5. DICLOFENAC [Concomitant]
     Indication: POSTOPERATIVE ANALGESIA
     Route: 030

REACTIONS (1)
  - SCIATIC NERVE PALSY [None]
